FAERS Safety Report 9173339 (Version 1)
Quarter: 2013Q1

REPORT INFORMATION
  Report Type: Spontaneous
  Country: NO (occurrence: None)
  Receive Date: 20130314
  Receipt Date: 20130314
  Transmission Date: 20140127
  Serious: Yes (Other)
  Sender: FDA-Public Use
  Company Number: ABR_00861_2013

PATIENT
  Age: 26 Year
  Sex: Female

DRUGS (1)
  1. ABBOTICIN ES [Suspect]
     Indication: PNEUMONIA
     Route: 048
     Dates: start: 20110124, end: 20110201

REACTIONS (6)
  - Alanine aminotransferase increased [None]
  - Nausea [None]
  - Fatigue [None]
  - Blood alkaline phosphatase increased [None]
  - Abdominal pain [None]
  - Hepatocellular injury [None]
